FAERS Safety Report 22520411 (Version 2)
Quarter: 2023Q2

REPORT INFORMATION
  Report Type: Spontaneous
  Country: JP (occurrence: JP)
  Receive Date: 20230605
  Receipt Date: 20230626
  Transmission Date: 20230722
  Serious: Yes (Hospitalization, Other)
  Sender: FDA-Public Use
  Company Number: JP-OTSUKA-2022_055243

PATIENT
  Age: 75 Year
  Sex: Female

DRUGS (7)
  1. ABILIFY [Suspect]
     Active Substance: ARIPIPRAZOLE
     Indication: Bipolar disorder
     Dosage: 24 MG, QD
     Route: 048
     Dates: start: 20221109, end: 20221109
  2. ABILIFY [Suspect]
     Active Substance: ARIPIPRAZOLE
     Indication: Psychomotor hyperactivity
  3. QUETIAPINE FUMARATE [Suspect]
     Active Substance: QUETIAPINE FUMARATE
     Indication: Product used for unknown indication
     Dosage: 50 MG, QD
     Route: 048
     Dates: start: 20221109, end: 20221124
  4. GABAPENTIN [Concomitant]
     Active Substance: GABAPENTIN
     Indication: Product used for unknown indication
     Dosage: 400 MG/DAY
     Route: 048
  5. VALPROATE SODIUM [Concomitant]
     Active Substance: VALPROATE SODIUM
     Indication: Product used for unknown indication
     Dosage: 600 MG/DAY, BID
     Route: 048
     Dates: start: 20221019, end: 20221206
  6. LITHIUM CARBONATE [Concomitant]
     Active Substance: LITHIUM CARBONATE
     Indication: Product used for unknown indication
     Dosage: 400 MG/DAY, BID
     Route: 048
     Dates: start: 20220817, end: 20221118
  7. BIPERIDEN HYDROCHLORIDE [Concomitant]
     Active Substance: BIPERIDEN HYDROCHLORIDE
     Indication: Product used for unknown indication
     Dosage: 2 MG/DAY, BID
     Route: 048
     Dates: start: 20221109, end: 20221111

REACTIONS (3)
  - Oculogyric crisis [Unknown]
  - Dystonia [Recovering/Resolving]
  - Parkinsonism [Unknown]

NARRATIVE: CASE EVENT DATE: 20221110
